FAERS Safety Report 15192853 (Version 1)
Quarter: 2018Q3

REPORT INFORMATION
  Report Type: Spontaneous
  Country: CZ (occurrence: CZ)
  Receive Date: 20180725
  Receipt Date: 20180725
  Transmission Date: 20181010
  Serious: Yes (Life-Threatening, Hospitalization, Other)
  Sender: FDA-Public Use
  Company Number: CZ-AUROBINDO-AUR-APL-2018-021919

PATIENT
  Age: 76 Year
  Sex: Female

DRUGS (3)
  1. ROSUVASTATIN FILM?COATED TABLET [Suspect]
     Active Substance: ROSUVASTATIN CALCIUM
     Indication: HYPERCHOLESTEROLAEMIA
     Dosage: 40 MILLIGRAM, ONCE A DAY
     Route: 048
  2. ATORVASTATIN [Suspect]
     Active Substance: ATORVASTATIN
     Indication: TYPE IIA HYPERLIPIDAEMIA
     Dosage: 40 MG, QD
     Route: 065
  3. ROSUVASTATIN FILM?COATED TABLET [Suspect]
     Active Substance: ROSUVASTATIN CALCIUM
     Indication: TYPE IIA HYPERLIPIDAEMIA

REACTIONS (3)
  - Rhabdomyolysis [Recovered/Resolved]
  - Paraparesis [Recovered/Resolved]
  - Acute kidney injury [Recovered/Resolved]
